FAERS Safety Report 5782077-4 (Version None)
Quarter: 2008Q2

REPORT INFORMATION
  Report Type: 
  Country: None (occurrence: None)
  Receive Date: 20080623
  Receipt Date: 20080612
  Transmission Date: 20081010
  Serious: Yes (Other)
  Sender: FDA-Public Use
  Company Number: IL-JNJFOC-20080603301

PATIENT
  Age: 28 Year
  Sex: Male

DRUGS (2)
  1. RISPERIDAL CONSTA [Suspect]
     Indication: SCHIZOPHRENIA, PARANOID TYPE
  2. RISPERDAL SOLUTION [Suspect]
     Indication: SCHIZOPHRENIA, PARANOID TYPE

REACTIONS (3)
  - HYPERTONIA [None]
  - MUSCLE RIGIDITY [None]
  - OVERDOSE [None]
